FAERS Safety Report 6020515-2 (Version None)
Quarter: 2008Q4

REPORT INFORMATION
  Report Type: 
  Country: None (occurrence: None)
  Receive Date: 20081226
  Receipt Date: 20081218
  Transmission Date: 20090506
  Serious: Yes (Hospitalization)
  Sender: FDA-Public Use
  Company Number: US-ABBOTT-08P-163-0494160-00

PATIENT
  Sex: Female
  Weight: 59.02 kg

DRUGS (5)
  1. HUMIRA [Suspect]
     Indication: RHEUMATOID ARTHRITIS
     Route: 058
     Dates: start: 20050901, end: 20080502
  2. HUMIRA [Suspect]
     Dates: start: 20080521
  3. ACTONEL [Concomitant]
     Indication: BLOOD PRESSURE MANAGEMENT
  4. FUROSEMIDE [Concomitant]
     Indication: CARDIAC DISORDER
  5. SPIRONOLACTONE [Concomitant]
     Indication: CARDIAC DISORDER

REACTIONS (3)
  - BREAST CYST [None]
  - NODULE ON EXTREMITY [None]
  - OPEN FRACTURE [None]
